FAERS Safety Report 21592374 (Version 3)
Quarter: 2022Q4

REPORT INFORMATION
  Report Type: Spontaneous
  Country: DE (occurrence: None)
  Receive Date: 20221114
  Receipt Date: 20221215
  Transmission Date: 20230113
  Serious: Yes (Disabling)
  Sender: FDA-Public Use
  Company Number: DE-ROCHE-3200614

PATIENT
  Sex: Male
  Weight: 80 kg

DRUGS (9)
  1. OCREVUS [Suspect]
     Active Substance: OCRELIZUMAB
     Indication: Multiple sclerosis
     Route: 042
     Dates: start: 20211005
  2. OCREVUS [Suspect]
     Active Substance: OCRELIZUMAB
     Route: 042
     Dates: start: 20211019
  3. OCREVUS [Suspect]
     Active Substance: OCRELIZUMAB
     Route: 042
     Dates: start: 20220426
  4. TELMISARTAN [Concomitant]
     Active Substance: TELMISARTAN
     Indication: Hypertension
     Route: 048
  5. DALFAMPRIDINE [Concomitant]
     Active Substance: DALFAMPRIDINE
     Indication: Gait disturbance
     Route: 048
     Dates: start: 20210809, end: 202207
  6. MONOVO [Concomitant]
  7. OPTIDERM [LAUROMACROGOL 400;UREA] [Concomitant]
  8. ELIDEL [Concomitant]
     Active Substance: PIMECROLIMUS
  9. TELMISARTAN [Concomitant]
     Active Substance: TELMISARTAN

REACTIONS (5)
  - Scleroderma-like reaction [Not Recovered/Not Resolved]
  - Skin fibrosis [Not Recovered/Not Resolved]
  - Hypergammaglobulinaemia [Not Recovered/Not Resolved]
  - Antinuclear antibody positive [Not Recovered/Not Resolved]
  - Bacterial test positive [Not Recovered/Not Resolved]

NARRATIVE: CASE EVENT DATE: 20220401
